FAERS Safety Report 13391337 (Version 1)
Quarter: 2017Q1

REPORT INFORMATION
  Report Type: Spontaneous
  Country: US (occurrence: US)
  Receive Date: 20170331
  Receipt Date: 20170331
  Transmission Date: 20170429
  Serious: Yes (Other)
  Sender: FDA-Public Use
  Company Number: US-ARALEZ PHARMACEUTICALS R+D INC.-ARA-TP-US-2017-226

PATIENT
  Sex: Female

DRUGS (7)
  1. PROAIR HFA [Concomitant]
     Active Substance: ALBUTEROL SULFATE
     Indication: ASTHMA
     Route: 055
  2. METOPROLOL SUCCINATE. [Suspect]
     Active Substance: METOPROLOL SUCCINATE
     Indication: BLOOD PRESSURE MANAGEMENT
     Route: 048
  3. PRAVASTATIN. [Concomitant]
     Active Substance: PRAVASTATIN
     Indication: BLOOD PRESSURE MEASUREMENT
     Route: 048
  4. TUDORZA PRESSAIR [Suspect]
     Active Substance: ACLIDINIUM BROMIDE
     Indication: CHRONIC OBSTRUCTIVE PULMONARY DISEASE
     Route: 055
     Dates: start: 20170314
  5. FOSAMAX [Concomitant]
     Active Substance: ALENDRONATE SODIUM
     Indication: OSTEOPOROSIS
  6. TRAZODONE [Concomitant]
     Active Substance: TRAZODONE HYDROCHLORIDE
     Indication: SLEEP DISORDER
     Route: 048
  7. METFORMIN [Concomitant]
     Active Substance: METFORMIN HYDROCHLORIDE
     Indication: DIABETES MELLITUS
     Route: 048

REACTIONS (6)
  - Osteoporosis [Unknown]
  - Chronic obstructive pulmonary disease [Unknown]
  - Hypertension [Unknown]
  - Diabetes mellitus [Unknown]
  - Blood cholesterol increased [Unknown]
  - Insomnia [Unknown]
